FAERS Safety Report 4579273-0 (Version None)
Quarter: 2005Q1

REPORT INFORMATION
  Report Type: 
  Country: None (occurrence: None)
  Receive Date: 20050210
  Receipt Date: 20050210
  Transmission Date: 20050727
  Serious: No
  Sender: FDA-Public Use
  Company Number: None

PATIENT
  Sex: Female
  Weight: 47.6 kg

DRUGS (1)
  1. INTERFERON-ALPHA [Suspect]
     Dosage: 9.0 M U SC 3X/WEEK. CYCLE #4 WEEKS
     Route: 058
     Dates: start: 20050124

REACTIONS (7)
  - DRY MOUTH [None]
  - DYSGEUSIA [None]
  - DYSPHAGIA [None]
  - GINGIVAL DISORDER [None]
  - ODYNOPHAGIA [None]
  - ORAL INTAKE REDUCED [None]
  - SWOLLEN TONGUE [None]
